FAERS Safety Report 4456244-6 (Version None)
Quarter: 2004Q3

REPORT INFORMATION
  Report Type: 
  Country: None (occurrence: None)
  Receive Date: 20040920
  Receipt Date: 20040726
  Transmission Date: 20050211
  Serious: Yes (Life-Threatening)
  Sender: FDA-Public Use
  Company Number: 04H-163-0268188-00

PATIENT
  Age: 68 Year
  Sex: Male

DRUGS (8)
  1. HEPARIN SODIUM [Suspect]
     Indication: ANTICOAGULANT THERAPY
  2. ACETYLSALICYLIC ACID [Concomitant]
  3. METOPROLOL [Concomitant]
  4. NITROGLYCERIN [Concomitant]
  5. LIDOCAINE [Concomitant]
  6. METRONIDAZOLE [Concomitant]
  7. BENZYLPENICILLIN [Concomitant]
  8. CEFTRAIXONE [Concomitant]

REACTIONS (16)
  - ADRENAL INSUFFICIENCY [None]
  - CONFUSIONAL STATE [None]
  - CONVULSION [None]
  - DIARRHOEA [None]
  - GASTROINTESTINAL INFECTION [None]
  - HEADACHE [None]
  - HYPONATRAEMIA [None]
  - HYPOPITUITARISM [None]
  - HYPOTHYROIDISM [None]
  - MENINGITIS [None]
  - NAUSEA [None]
  - PITUITARY HAEMORRHAGE [None]
  - PITUITARY INFARCTION [None]
  - PITUITARY TUMOUR BENIGN [None]
  - PYREXIA [None]
  - RED BLOOD CELLS CSF POSITIVE [None]
